FAERS Safety Report 15272463 (Version 1)
Quarter: 2018Q3

REPORT INFORMATION
  Report Type: Other
  Country: US (occurrence: CA)
  Receive Date: 20180813
  Receipt Date: 20180813
  Transmission Date: 20181010
  Serious: Yes (Hospitalization)
  Sender: FDA-Public Use
  Company Number: CA-BRECKENRIDGE PHARMACEUTICAL, INC.-2053639

PATIENT
  Age: 4 Year
  Sex: Male

DRUGS (1)
  1. NEOMYCIN. [Suspect]
     Active Substance: NEOMYCIN

REACTIONS (1)
  - Eosinophilic cellulitis [Recovered/Resolved]
